FAERS Safety Report 20850112 (Version 1)
Quarter: 2022Q2

REPORT INFORMATION
  Report Type: Spontaneous
  Country: US (occurrence: US)
  Receive Date: 20220519
  Receipt Date: 20220519
  Transmission Date: 20220720
  Serious: Yes (Other)
  Sender: FDA-Public Use
  Company Number: US-SA-SAC20220518001811

PATIENT
  Sex: Male

DRUGS (1)
  1. DUPIXENT [Suspect]
     Active Substance: DUPILUMAB
     Indication: Eczema
     Dosage: 300 UNK, QOW
     Route: 058
     Dates: start: 202008

REACTIONS (3)
  - Retinal deposits [Unknown]
  - Cataract [Unknown]
  - Metamorphopsia [Unknown]
